FAERS Safety Report 15423582 (Version 1)
Quarter: 2018Q3

REPORT INFORMATION
  Report Type: Spontaneous
  Country: US (occurrence: US)
  Receive Date: 20180920
  Receipt Date: 20180920
  Transmission Date: 20181010
  Serious: Yes (Life-Threatening, Hospitalization)
  Sender: FDA-Public Use
  Company Number: None

PATIENT
  Age: 51 Year
  Sex: Female
  Weight: 57.4 kg

DRUGS (4)
  1. ACETAZOLAMIDE 250MG [Concomitant]
  2. LEVETIRACETAM 1500MG [Concomitant]
     Active Substance: LEVETIRACETAM
  3. CYMBALTA (DULOXETINE) 50MG [Concomitant]
  4. NIVOLUMAB [Suspect]
     Active Substance: NIVOLUMAB
     Indication: NON-SMALL CELL LUNG CANCER METASTATIC
     Route: 042
     Dates: start: 20180824, end: 20180824

REACTIONS (5)
  - Lip blister [None]
  - Pain [None]
  - Gingival swelling [None]
  - Rash vesicular [None]
  - Pruritus [None]

NARRATIVE: CASE EVENT DATE: 20180917
